FAERS Safety Report 26150584 (Version 1)
Quarter: 2025Q4

REPORT INFORMATION
  Report Type: Report from Study
  Country: US (occurrence: US)
  Receive Date: 20251212
  Receipt Date: 20251212
  Transmission Date: 20260118
  Serious: Yes (Other)
  Sender: VERONA PHARMA
  Company Number: US-VERONA PHARMA-VER-006856

PATIENT
  Sex: Female

DRUGS (2)
  1. OHTUVAYRE [Suspect]
     Active Substance: ENSIFENTRINE
     Indication: Chronic obstructive pulmonary disease
     Dosage: 3 MILLIGRAM, BID
     Dates: start: 202506, end: 2025
  2. DUPIXENT [Concomitant]
     Active Substance: DUPILUMAB
     Indication: Product used for unknown indication
     Dosage: INJECT 2 PENS UNDER THE SKIN ON DAY 0, THEN INJECT 1 PEN ON DAY 14 THEN 1 PEN EVERY 14 DAYS THEREAFTER

REACTIONS (3)
  - Hypertension [Unknown]
  - Headache [Recovered/Resolved]
  - Diarrhoea [Unknown]
